FAERS Safety Report 16420450 (Version 4)
Quarter: 2019Q3

REPORT INFORMATION
  Report Type: Spontaneous
  Country: JP (occurrence: JP)
  Receive Date: 20190612
  Receipt Date: 20190830
  Transmission Date: 20191004
  Serious: Yes (Other)
  Sender: FDA-Public Use
  Company Number: JP-PFIZER INC-2019250434

PATIENT
  Age: 84 Year
  Sex: Male
  Weight: 54 kg

DRUGS (15)
  1. WARFARIN [Interacting]
     Active Substance: WARFARIN
     Dosage: 1 MG, 2X/DAY
     Route: 048
  2. FUROSEMIDE. [Concomitant]
     Active Substance: FUROSEMIDE
     Indication: CARDIAC FAILURE CHRONIC
     Dosage: 40 MG, 1X/DAY
     Route: 048
  3. FUROSEMIDE. [Concomitant]
     Active Substance: FUROSEMIDE
     Dosage: 10 MG, 1X/DAY
     Route: 048
  4. WARFARIN [Interacting]
     Active Substance: WARFARIN
     Indication: MITRAL VALVE INCOMPETENCE
     Dosage: 1 MG, UNK
     Route: 048
     Dates: start: 20190608, end: 20190610
  5. CELECOX [Suspect]
     Active Substance: CELECOXIB
     Indication: ARTHRITIS
     Dosage: 200 MG, DAILY
     Route: 048
     Dates: start: 20190513, end: 20190522
  6. WARFARIN [Interacting]
     Active Substance: WARFARIN
     Dosage: 1.25 MG, UNK
     Route: 048
     Dates: start: 20190618
  7. WARFARIN [Interacting]
     Active Substance: WARFARIN
     Dosage: 0.5 MG, 1X/DAY
     Route: 048
  8. PROSEXOL [Concomitant]
     Active Substance: ETHINYL ESTRADIOL
     Indication: PROSTATE CANCER
     Dosage: 1 MG, 1X/DAY
     Route: 048
  9. PROSTAT [CHLORMADINONE ACETATE] [Concomitant]
     Indication: PROSTATE CANCER
     Dosage: 50 MG, 1X/DAY
     Route: 048
  10. SPIRONOLACTONE. [Concomitant]
     Active Substance: SPIRONOLACTONE
     Indication: CARDIAC FAILURE CHRONIC
     Dosage: 12.5 MG, 1X/DAY
     Route: 048
  11. LANSOPRAZOLE. [Concomitant]
     Active Substance: LANSOPRAZOLE
     Indication: GASTROOESOPHAGEAL REFLUX DISEASE
     Dosage: 15 MG, 1X/DAY
     Route: 048
  12. WARFARIN [Interacting]
     Active Substance: WARFARIN
     Indication: CORONARY ARTERIAL STENT INSERTION
     Dosage: UNK
     Route: 048
     Dates: end: 20190607
  13. BUP-4 [Concomitant]
     Active Substance: PROPIVERINE
     Indication: HYPERTONIC BLADDER
     Dosage: 20 MG, 1X/DAY
     Route: 048
  14. TRICHLORMETHIAZIDE [Concomitant]
     Active Substance: TRICHLORMETHIAZIDE
     Indication: CARDIAC FAILURE CHRONIC
     Dosage: 1 MG, 1X/DAY
     Route: 048
  15. WARFARIN [Interacting]
     Active Substance: WARFARIN
     Dosage: 1.5 MG, UNK
     Route: 048
     Dates: start: 20190611

REACTIONS (3)
  - Off label use [Unknown]
  - International normalised ratio increased [Recovering/Resolving]
  - Drug interaction [Recovering/Resolving]

NARRATIVE: CASE EVENT DATE: 20190605
